FAERS Safety Report 6015875-2 (Version None)
Quarter: 2008Q4

REPORT INFORMATION
  Report Type: 
  Country: None (occurrence: None)
  Receive Date: 20081222
  Receipt Date: 20081219
  Transmission Date: 20090506
  Serious: Yes (Death, Hospitalization)
  Sender: FDA-Public Use
  Company Number: A0761189A

PATIENT
  Age: 75 Year
  Sex: Male
  Weight: 111.8 kg

DRUGS (7)
  1. AVANDIA [Suspect]
     Dosage: 8MG PER DAY
     Route: 048
     Dates: start: 20000101, end: 20061211
  2. FUROSEMIDE [Concomitant]
  3. LIPITOR [Concomitant]
  4. ZOLOFT [Concomitant]
  5. LEVOXYL [Concomitant]
  6. ASPIRIN [Concomitant]
  7. ACETAMINOPHEN [Concomitant]

REACTIONS (3)
  - CARDIAC FAILURE CONGESTIVE [None]
  - DEATH [None]
  - SILENT MYOCARDIAL INFARCTION [None]
